FAERS Safety Report 4817571-3 (Version None)
Quarter: 2005Q4

REPORT INFORMATION
  Report Type: 
  Country: None (occurrence: None)
  Receive Date: 20051031
  Receipt Date: 20051020
  Transmission Date: 20060501
  Serious: No
  Sender: FDA-Public Use
  Company Number: RS005522-F

PATIENT
  Age: 47 Year
  Sex: Male
  Weight: 86 kg

DRUGS (1)
  1. RABEPRAZOLE SODIUM [Suspect]
     Indication: DYSPEPSIA
     Dosage: 1 IN 1 D, ORAL
     Route: 048
     Dates: start: 20050920, end: 20050924

REACTIONS (1)
  - ERYTHEMA NODOSUM [None]
